FAERS Safety Report 9199721 (Version 1)
Quarter: 2013Q1

REPORT INFORMATION
  Report Type: Report from Study
  Country: AT (occurrence: AT)
  Receive Date: 20130329
  Receipt Date: 20130329
  Transmission Date: 20140127
  Serious: Yes (Death, Other)
  Sender: FDA-Public Use
  Company Number: AT-ROCHE-540141

PATIENT
  Age: 66 Year
  Sex: Female

DRUGS (14)
  1. XELODA [Suspect]
     Indication: BREAST CANCER METASTATIC
     Route: 048
     Dates: start: 20060320, end: 20060409
  2. XELODA [Suspect]
     Route: 048
     Dates: start: 20060410, end: 20060430
  3. XELODA [Suspect]
     Route: 048
     Dates: start: 20060501, end: 20060521
  4. XELODA [Suspect]
     Route: 048
     Dates: start: 20060522, end: 20060611
  5. XELODA [Suspect]
     Route: 048
     Dates: start: 20060612, end: 20060702
  6. XELODA [Suspect]
     Route: 048
     Dates: start: 20060703, end: 20060723
  7. XELODA [Suspect]
     Route: 048
     Dates: start: 20060624, end: 20060713
  8. XELODA [Suspect]
     Route: 048
     Dates: start: 20060814, end: 20060903
  9. XELODA [Suspect]
     Route: 048
     Dates: start: 20060904, end: 20060924
  10. XELODA [Suspect]
     Route: 048
     Dates: start: 20061002, end: 20061022
  11. XELODA [Suspect]
     Route: 048
     Dates: start: 20061023, end: 20061112
  12. XELODA [Suspect]
     Route: 048
     Dates: start: 20061113, end: 20061203
  13. XELODA [Suspect]
     Route: 048
     Dates: start: 20061204, end: 20061224
  14. XELODA [Suspect]
     Route: 048
     Dates: start: 20070101, end: 20070121

REACTIONS (2)
  - Disease progression [Fatal]
  - Palmar-plantar erythrodysaesthesia syndrome [Recovered/Resolved]
